FAERS Safety Report 4548518-5 (Version None)
Quarter: 2005Q1

REPORT INFORMATION
  Report Type: 
  Country: None (occurrence: None)
  Receive Date: 20050110
  Receipt Date: 20050105
  Transmission Date: 20050727
  Serious: Yes (Hospitalization)
  Sender: FDA-Public Use
  Company Number: FR-GLAXOSMITHKLINE-B0363544A

PATIENT
  Age: 87 Year
  Sex: Female

DRUGS (10)
  1. AUGMENTIN [Suspect]
     Dosage: 3UNIT PER DAY
     Route: 048
     Dates: start: 20041001, end: 20041010
  2. CORTANCYL [Suspect]
     Dosage: 40MG PER DAY
     Route: 048
     Dates: start: 20041005, end: 20041007
  3. ZOCOR [Concomitant]
     Route: 065
  4. COVERSYL [Concomitant]
     Route: 065
  5. LASILIX [Concomitant]
     Route: 065
  6. ALDACTONE [Concomitant]
     Route: 065
  7. MEDIATOR [Concomitant]
     Route: 065
  8. DEBRIDAT [Concomitant]
     Route: 065
  9. ZOLPIDEM TARTRATE [Concomitant]
     Route: 065
  10. KARDEGIC [Concomitant]
     Route: 065

REACTIONS (1)
  - VASCULAR PURPURA [None]
